FAERS Safety Report 5766183-6 (Version None)
Quarter: 2008Q2

REPORT INFORMATION
  Report Type: 
  Country: None (occurrence: None)
  Receive Date: 20080605
  Receipt Date: 20080521
  Transmission Date: 20081010
  Serious: Yes (Hospitalization)
  Sender: FDA-Public Use
  Company Number: DSA_31904_2008

PATIENT
  Sex: Female

DRUGS (3)
  1. TAVOR /00273201/ (TAVOR - LORAZEPAM) 0.5 MG (NOT SPECIFIED) [Suspect]
     Dosage: (6 MG 1X ORAL)
     Dates: start: 20080521, end: 20080521
  2. PARACETAMOL (PARACETAMOL) 500 MG [Suspect]
     Dosage: (2500 MG 1X ORAL)
     Route: 048
     Dates: start: 20080521, end: 20080521
  3. TREVILOR (TREVILOR - VENLAFAXINE HYDROCHLORIDE) 150 MG (NOT SPECIFIED) [Suspect]
     Dosage: (300 MG 1X ORAL)
     Route: 048
     Dates: start: 20080521, end: 20080521

REACTIONS (3)
  - MULTIPLE DRUG OVERDOSE INTENTIONAL [None]
  - SUICIDE ATTEMPT [None]
  - VOMITING [None]
